FAERS Safety Report 4555444-4 (Version None)
Quarter: 2005Q1

REPORT INFORMATION
  Report Type: 
  Country: None (occurrence: None)
  Receive Date: 20050118
  Receipt Date: 20050118
  Transmission Date: 20050727
  Serious: Yes (Hospitalization)
  Sender: FDA-Public Use
  Company Number: None

PATIENT
  Age: 18 Year
  Sex: Male
  Weight: 117.4 kg

DRUGS (6)
  1. ATORVASTATIN     20 MG TABLETS [Suspect]
     Indication: HYPERCHOLESTEROLAEMIA
     Dosage: 20 MG     DAILY    ORAL
     Route: 048
     Dates: start: 20050109, end: 20050116
  2. ATORVASTATIN     20 MG TABLETS [Suspect]
     Indication: NEPHROTIC SYNDROME
     Dosage: 20 MG     DAILY    ORAL
     Route: 048
     Dates: start: 20050109, end: 20050116
  3. LASIX [Concomitant]
  4. LISINOPRIL [Concomitant]
  5. BUDESONIDE [Concomitant]
  6. MAXAIR [Concomitant]

REACTIONS (1)
  - MYALGIA [None]
